APPROVED DRUG PRODUCT: ZIPRASIDONE MESYLATE
Active Ingredient: ZIPRASIDONE MESYLATE
Strength: EQ 20MG BASE/VIAL
Dosage Form/Route: POWDER;INTRAMUSCULAR
Application: A216091 | Product #001 | TE Code: AP
Applicant: MSN LABORATORIES PRIVATE LTD
Approved: Sep 15, 2022 | RLD: No | RS: No | Type: RX